FAERS Safety Report 12594928 (Version 1)
Quarter: 2016Q3

REPORT INFORMATION
  Report Type: Spontaneous
  Country: US (occurrence: US)
  Receive Date: 20160726
  Receipt Date: 20160726
  Transmission Date: 20161109
  Serious: No
  Sender: FDA-Public Use
  Company Number: US-UNITED THERAPEUTICS-UNT-2016-002902

PATIENT
  Age: 67 Year
  Sex: Female
  Weight: 75.74 kg

DRUGS (2)
  1. REVATIO [Concomitant]
     Active Substance: SILDENAFIL CITRATE
     Indication: PRODUCT USED FOR UNKNOWN INDICATION
  2. TYVASO [Suspect]
     Active Substance: TREPROSTINIL
     Indication: PULMONARY ARTERIAL HYPERTENSION
     Dosage: 18-54 MICROGRAMS, QID
     Dates: start: 20151210

REACTIONS (7)
  - Oxygen saturation decreased [Unknown]
  - Anaemia [Unknown]
  - Asthenia [Unknown]
  - Frequent bowel movements [Unknown]
  - Nausea [Unknown]
  - Fluid retention [Unknown]
  - Dizziness [Unknown]

NARRATIVE: CASE EVENT DATE: 201602
